FAERS Safety Report 16548726 (Version 1)
Quarter: 2019Q3

REPORT INFORMATION
  Report Type: Spontaneous
  Country: FR (occurrence: FR)
  Receive Date: 20190709
  Receipt Date: 20190709
  Transmission Date: 20191004
  Serious: Yes (Life-Threatening)
  Sender: FDA-Public Use
  Company Number: FR-MYLANLABS-2019M1063763

PATIENT
  Age: 50 Year
  Sex: Female
  Weight: 55 kg

DRUGS (3)
  1. FENTANYL. [Interacting]
     Active Substance: FENTANYL
     Indication: FIBROMYALGIA
     Dosage: 25 MICROGRAM, QH
     Route: 062
     Dates: start: 20190114, end: 20190115
  2. NOCERTONE [Interacting]
     Active Substance: OXETORONE
     Indication: MIGRAINE
     Dosage: UNK
     Route: 048
     Dates: start: 2017, end: 20190114
  3. TRAMADOL. [Suspect]
     Active Substance: TRAMADOL
     Indication: FIBROMYALGIA
     Dosage: 150 MILLIGRAM, QD
     Route: 048
     Dates: end: 20190115

REACTIONS (2)
  - Drug interaction [Unknown]
  - Coma [Recovered/Resolved]

NARRATIVE: CASE EVENT DATE: 20190115
